FAERS Safety Report 15889757 (Version 2)
Quarter: 2019Q2

REPORT INFORMATION
  Report Type: Spontaneous
  Country: US (occurrence: US)
  Receive Date: 20190130
  Receipt Date: 20190529
  Transmission Date: 20190711
  Serious: Yes (Other)
  Sender: FDA-Public Use
  Company Number: US-GLAXOSMITHKLINE-US2019013715

PATIENT
  Age: 11 Year
  Sex: Female

DRUGS (1)
  1. ADVAIR HFA [Suspect]
     Active Substance: FLUTICASONE PROPIONATE\SALMETEROL XINAFOATE
     Indication: ASTHMA
     Dosage: 2 PUFF(S), BID
     Route: 055
     Dates: start: 2017

REACTIONS (26)
  - Dizziness [Unknown]
  - Hypersensitivity [Recovering/Resolving]
  - Oropharyngeal pain [Unknown]
  - Nasopharyngitis [Unknown]
  - Odynophagia [Unknown]
  - Chest discomfort [Unknown]
  - Dental plaque [Unknown]
  - Tracheal pain [Unknown]
  - Chest pain [Unknown]
  - Haemorrhage [Unknown]
  - Pyrexia [Unknown]
  - Feeling cold [Unknown]
  - Gingivitis [Recovering/Resolving]
  - Memory impairment [Unknown]
  - Fatigue [Unknown]
  - Product administered to patient of inappropriate age [Unknown]
  - Mouth haemorrhage [Unknown]
  - Pneumonia [Unknown]
  - Dysphonia [Unknown]
  - Dyspnoea [Unknown]
  - Dysgeusia [Unknown]
  - Epistaxis [Unknown]
  - Feeling hot [Unknown]
  - Inappropriate schedule of product administration [Unknown]
  - Stomatitis [Recovering/Resolving]
  - Insomnia [Unknown]

NARRATIVE: CASE EVENT DATE: 2018
